FAERS Safety Report 5786037-9 (Version None)
Quarter: 2008Q2

REPORT INFORMATION
  Report Type: 
  Country: None (occurrence: None)
  Receive Date: 20080620
  Receipt Date: 20080620
  Transmission Date: 20081010
  Serious: Yes (Death, Hospitalization)
  Sender: FDA-Public Use
  Company Number: None

PATIENT
  Age: 56 Year
  Sex: Male
  Weight: 63.05 kg

DRUGS (3)
  1. OXALIPLATIN [Suspect]
     Indication: OESOPHAGEAL ADENOCARCINOMA
     Dosage: 115MG EVERY OTHER WEEK IV DRIP
     Route: 041
     Dates: start: 20071226, end: 20080423
  2. LEUCOVORIN CALCIUM [Suspect]
     Indication: OESOPHAGEAL ADENOCARCINOMA
     Dosage: 708MG EVERY OTHER WEEK IV DRIP
     Route: 041
     Dates: start: 20071226, end: 20080423
  3. FLUOROURACIL [Suspect]
     Dosage: 3186MG EVERY OTHER WEEK IV DRIP
     Route: 041
     Dates: start: 20071226, end: 20080423

REACTIONS (8)
  - ABDOMINAL PAIN [None]
  - DEHYDRATION [None]
  - DISEASE PROGRESSION [None]
  - DYSPHASIA [None]
  - OEDEMA [None]
  - OEDEMA PERIPHERAL [None]
  - PULMONARY OEDEMA [None]
  - SECRETION DISCHARGE [None]
